FAERS Safety Report 5214182-5 (Version None)
Quarter: 2007Q1

REPORT INFORMATION
  Report Type: 
  Country: None (occurrence: None)
  Receive Date: 20070116
  Receipt Date: 20070104
  Transmission Date: 20070707
  Serious: Yes (Hospitalization)
  Sender: FDA-Public Use
  Company Number: B0453394A

PATIENT
  Age: 51 Year
  Sex: Male

DRUGS (1)
  1. LITHIUM CARBONATE [Suspect]
     Indication: BIPOLAR DISORDER
     Dosage: UNK/UNKNOWN/UNKNOWN

REACTIONS (9)
  - ASTHENIA [None]
  - CAUDA EQUINA SYNDROME [None]
  - EPENDYMOMA [None]
  - FAECAL INCONTINENCE [None]
  - HYPOAESTHESIA [None]
  - PARAESTHESIA [None]
  - SPINAL CORD COMPRESSION [None]
  - SUBARACHNOID HAEMORRHAGE [None]
  - URINARY INCONTINENCE [None]
